FAERS Safety Report 8593887-2 (Version None)
Quarter: 2012Q3

REPORT INFORMATION
  Report Type: 
  Country: None (occurrence: None)
  Receive Date: 20120814
  Receipt Date: 20120801
  Transmission Date: 20120928
  Serious: Yes (Other)
  Sender: FDA-Public Use
  Company Number: JP-PFIZER INC-2012188450

PATIENT
  Age: 51 Year
  Sex: Female

DRUGS (2)
  1. GONADOTROPIN RELEASING HORMONE (GNRH) [Suspect]
     Indication: LYMPHANGIOLEIOMYOMATOSIS
  2. MEDROXYPROGESTERONE ACETATE [Suspect]
     Indication: LYMPHANGIOLEIOMYOMATOSIS
     Dosage: UNK

REACTIONS (1)
  - MENINGIOMA [None]
